FAERS Safety Report 10551002 (Version 1)
Quarter: 2014Q4

REPORT INFORMATION
  Report Type: Spontaneous
  Country: US (occurrence: None)
  Receive Date: 20141020
  Receipt Date: 20141020
  Transmission Date: 20150529
  Serious: No
  Sender: FDA-Public Use
  Company Number: AEGR000611

PATIENT
  Age: 52 Year
  Sex: Male

DRUGS (13)
  1. LISINOPRIL. [Concomitant]
     Active Substance: LISINOPRIL
  2. LOPRESSOR [Concomitant]
     Active Substance: METOPROLOL TARTRATE
  3. SINGULAIR [Concomitant]
     Active Substance: MONTELUKAST SODIUM
  4. OMEPRAZOLE. [Concomitant]
     Active Substance: OMEPRAZOLE
  5. PRAVACHOL (PRAVASTATIN SODIUM) [Concomitant]
  6. POTASSIUM (POTASSIUM BICARBONATE, POTASSIUM CHLORIDE) [Concomitant]
  7. LASIX [Concomitant]
     Active Substance: FUROSEMIDE
  8. JUXTAPID [Suspect]
     Active Substance: LOMITAPIDE MESYLATE
     Indication: TYPE IIA HYPERLIPIDAEMIA
     Route: 048
     Dates: start: 20140523, end: 20140905
  9. ASA [Concomitant]
     Active Substance: ASPIRIN
  10. SYMBICORT [Concomitant]
     Active Substance: BUDESONIDE\FORMOTEROL FUMARATE DIHYDRATE
  11. COLACE [Concomitant]
     Active Substance: DOCUSATE SODIUM
  12. INSULIN (INSULIN PORCINE) [Concomitant]
     Active Substance: INSULIN PORK\INSULIN PURIFIED PORK
  13. ALBUTEROL (SALBUTAMOL SULFATE) [Concomitant]

REACTIONS (7)
  - Weight decreased [None]
  - Inappropriate schedule of drug administration [None]
  - Nightmare [None]
  - Feeling abnormal [None]
  - Hyperventilation [None]
  - Somnambulism [None]
  - Myalgia [None]

NARRATIVE: CASE EVENT DATE: 201405
